FAERS Safety Report 8935860 (Version 3)
Quarter: 2013Q1

REPORT INFORMATION
  Report Type: Spontaneous
  Country: JP (occurrence: JP)
  Receive Date: 20121130
  Receipt Date: 20130130
  Transmission Date: 20140127
  Serious: Yes (Other)
  Sender: FDA-Public Use
  Company Number: JP-009507513-1211JPN011412

PATIENT
  Age: 70 Year
  Sex: Male

DRUGS (1)
  1. PEPCID [Suspect]
     Indication: PRODUCT USED FOR UNKNOWN INDICATION
     Dosage: 20 MG, UID/QD
     Route: 048

REACTIONS (2)
  - Decreased appetite [Recovered/Resolved]
  - Intentional drug misuse [Unknown]
